FAERS Safety Report 5603426-3 (Version None)
Quarter: 2008Q1

REPORT INFORMATION
  Report Type: 
  Country: None (occurrence: None)
  Receive Date: 20080123
  Receipt Date: 20080108
  Transmission Date: 20080703
  Serious: Yes (Death, Other)
  Sender: FDA-Public Use
  Company Number: 100#08#2008-00142

PATIENT
  Age: 26 Year
  Sex: Female

DRUGS (6)
  1. METHOTREXATE [Suspect]
     Indication: ACUTE LYMPHOCYTIC LEUKAEMIA
     Dosage: INTRAVENOUS
     Route: 042
  2. DOXORUBICIN HCL [Suspect]
     Indication: ACUTE LYMPHOCYTIC LEUKAEMIA
  3. CYTARABINE [Suspect]
     Indication: ACUTE LYMPHOCYTIC LEUKAEMIA
     Dosage: 100 MG, INTRAVENOUS, INTRATHECAL
     Route: 042
  4. CYCLOPHOSPHAMIDE [Suspect]
     Indication: ACUTE LYMPHOCYTIC LEUKAEMIA
  5. VINCRISTINE [Suspect]
     Indication: ACUTE LYMPHOCYTIC LEUKAEMIA
  6. DEXAMETHASONE TAB [Suspect]
     Indication: ACUTE LYMPHOCYTIC LEUKAEMIA

REACTIONS (11)
  - ATROPHY [None]
  - DRUG TOXICITY [None]
  - FAECAL INCONTINENCE [None]
  - LEUKAEMIA RECURRENT [None]
  - MYELOPATHY [None]
  - OSTEOMYELITIS [None]
  - PARALYSIS FLACCID [None]
  - PARAPLEGIA [None]
  - SEPSIS [None]
  - SPINAL CORD DISORDER [None]
  - URINARY INCONTINENCE [None]
